FAERS Safety Report 9187818 (Version 1)
Quarter: 2013Q1

REPORT INFORMATION
  Report Type: Spontaneous
  Country: US (occurrence: US)
  Receive Date: 20130325
  Receipt Date: 20130325
  Transmission Date: 20140127
  Serious: No
  Sender: FDA-Public Use
  Company Number: US-BAUSCH-BL-2012-000738

PATIENT
  Age: 74 Year
  Sex: Female

DRUGS (4)
  1. POLYMYXIN B SULFATE AND TRIMETHOPRIM [Suspect]
     Indication: PRODUCT USED FOR UNKNOWN INDICATION
     Route: 047
  2. PREDNISOLONE ACETATE [Suspect]
     Route: 047
  3. PREDNISOLONE ACETATE [Suspect]
     Route: 047
  4. NEPAFENAC [Suspect]
     Route: 047

REACTIONS (6)
  - Eye discharge [Unknown]
  - Eyelid margin crusting [Unknown]
  - Ocular icterus [Unknown]
  - Yellow skin [Unknown]
  - Eye pain [Unknown]
  - Eye irritation [Unknown]
